FAERS Safety Report 8901831 (Version 1)
Quarter: 2012Q4

REPORT INFORMATION
  Report Type: Spontaneous
  Country: US (occurrence: None)
  Receive Date: 20121106
  Receipt Date: 20121106
  Transmission Date: 20130627
  Serious: Yes (Hospitalization)
  Sender: FDA-Public Use
  Company Number: 2012ST000714

PATIENT
  Age: 10 Year
  Sex: Male

DRUGS (30)
  1. ONCASPAR [Suspect]
     Indication: ACUTE LYMPHOCYTIC LEUKEMIA
     Dates: start: 20120808, end: 20120808
  2. ONCASPAR [Suspect]
     Indication: ACUTE LYMPHOCYTIC LEUKEMIA
     Dates: start: 20120826, end: 20120826
  3. DASATINIB [Suspect]
     Indication: ACUTE LYMPHOCYTIC LEUKEMIA
     Route: 048
     Dates: start: 20120604
  4. ETOPOSIDE [Suspect]
     Indication: ACUTE LYMPHOCYTIC LEUKEMIA
     Dates: start: 20120823, end: 20120825
  5. MORPHINE SULFATE [Suspect]
     Indication: MUCOSITIS
     Route: 042
  6. METHOTREXATE [Suspect]
     Indication: ACUTE LYMPHOCYTIC LEUKEMIA
     Route: 042
     Dates: start: 20120731, end: 20120731
  7. METHOTREXATE [Suspect]
     Indication: ACUTE LYMPHOCYTIC LEUKEMIA
     Route: 042
     Dates: start: 20120824, end: 20120824
  8. METHOTREXATE [Suspect]
     Indication: ACUTE LYMPHOCYTIC LEUKEMIA
     Route: 037
     Dates: start: 20120911, end: 20120911
  9. CYTARABINE [Suspect]
     Indication: ACUTE LYMPHOCYTIC LEUKEMIA
     Route: 042
     Dates: start: 20120731, end: 20120731
  10. CYTARABINE [Suspect]
     Indication: ACUTE LYMPHOCYTIC LEUKEMIA
     Route: 042
     Dates: start: 20120821, end: 20120823
  11. CYTARABINE [Suspect]
     Indication: ACUTE LYMPHOCYTIC LEUKEMIA
     Route: 037
     Dates: start: 20120824, end: 20120824
  12. DEXAMETHASONE [Suspect]
     Indication: ACUTE LYMPHOCYTIC LEUKEMIA
     Route: 048
     Dates: start: 20120731, end: 20120804
  13. DEXAMETHASONE [Suspect]
     Indication: ACUTE LYMPHOCYTIC LEUKEMIA
     Route: 048
     Dates: start: 20120821, end: 20120824
  14. DEXAMETHASONE [Suspect]
     Indication: ACUTE LYMPHOCYTIC LEUKEMIA
     Route: 048
     Dates: start: 20120909
  15. VINCRISTINE [Suspect]
     Indication: ACUTE LYMPHOCYTIC LEUKEMIA
     Route: 042
     Dates: start: 20120801, end: 20120805
  16. DAUNORUBICIN [Suspect]
     Indication: ACUTE LYMPHOCYTIC LEUKEMIA
     Route: 042
     Dates: start: 20120804, end: 20120804
  17. HYDROCORTISONE [Suspect]
     Indication: DRUG USE FOR UNKNOWN INDICATION
     Route: 037
     Dates: start: 20120731
  18. LORAZEPAM [Concomitant]
  19. ONDANSETRON [Concomitant]
  20. OSCAL /07357001/ [Concomitant]
  21. VITAMIN D	 /00107901/ [Concomitant]
  22. DRONABINOL [Concomitant]
  23. METOCLOPRAMIDE [Concomitant]
  24. SCOPOLAMINE /00008701/ [Concomitant]
  25. PERIACTIN [Concomitant]
  26. BACTRIM [Concomitant]
  27. CHLORHEXIDINE [Concomitant]
  28. NEUTRA-PHOS	/00555301/ [Concomitant]
  29. FLUCONAZOLE [Concomitant]
  30. POLYETHYLENE GLYCOL [Concomitant]

REACTIONS (16)
  - Stomatitis [None]
  - Hypophagia [None]
  - Febrile neutropenia [None]
  - Dehydration [None]
  - Pain [None]
  - Vomiting [None]
  - Abdominal pain [None]
  - Diarrhoea [None]
  - Mucosal infection [None]
  - Gastrointestinal inflammation [None]
  - Klebsiella bacteraemia [None]
  - Headache [None]
  - Headache [None]
  - Convulsion [None]
  - Altered state of consciousness [None]
  - Electroencephalogram abnormal [None]
